FAERS Safety Report 6602950-4 (Version None)
Quarter: 2010Q1

REPORT INFORMATION
  Report Type: 
  Country: None (occurrence: None)
  Receive Date: 20100219
  Receipt Date: 20100207
  Transmission Date: 20100710
  Serious: Yes (Other)
  Sender: FDA-Public Use
  Company Number: 1000011882

PATIENT
  Age: 25 Year
  Sex: Male
  Weight: 75 kg

DRUGS (3)
  1. ESCITALOPRAM OXALATE [Suspect]
     Dosage: (500 MG,ONCE), ORAL
     Route: 048
     Dates: start: 20100207, end: 20100207
  2. IBU [Suspect]
     Dosage: (13200 MG,ONCE), ORAL
     Route: 048
     Dates: start: 20100207, end: 20100207
  3. ALCOHOL [Suspect]
     Dosage: 1 LITER OF VODKA (ONCE), ORAL
     Route: 048
     Dates: start: 20100207, end: 20100207

REACTIONS (3)
  - INTENTIONAL OVERDOSE [None]
  - SOPOR [None]
  - SUICIDE ATTEMPT [None]
